FAERS Safety Report 9924380 (Version 1)
Quarter: 2014Q1

REPORT INFORMATION
  Report Type: Spontaneous
  Country: GB (occurrence: GB)
  Receive Date: 20140226
  Receipt Date: 20140226
  Transmission Date: 20141002
  Serious: Yes (Other)
  Sender: FDA-Public Use
  Company Number: GB-DRREDDYS-GER/UKI/14/0038352

PATIENT
  Age: 31 Year
  Sex: Male
  Weight: 63.73 kg

DRUGS (4)
  1. TERBINAFINE [Suspect]
     Indication: PRODUCT USED FOR UNKNOWN INDICATION
     Dates: start: 20131120, end: 20140115
  2. BETAMETHASONE VALERATE [Concomitant]
     Indication: PRODUCT USED FOR UNKNOWN INDICATION
     Dates: start: 20131025
  3. E45 [Concomitant]
     Indication: PRODUCT USED FOR UNKNOWN INDICATION
     Dates: start: 20131203, end: 20131231
  4. MOMETASONE [Concomitant]
     Indication: PRODUCT USED FOR UNKNOWN INDICATION
     Dates: start: 20131025

REACTIONS (3)
  - Blister [Recovering/Resolving]
  - Rash macular [Recovering/Resolving]
  - Rash pustular [Recovering/Resolving]
